FAERS Safety Report 6443115-9 (Version None)
Quarter: 2009Q4

REPORT INFORMATION
  Report Type: 
  Country: None (occurrence: None)
  Receive Date: 20091117
  Receipt Date: 20091111
  Transmission Date: 20100525
  Serious: Yes (Hospitalization, Congenital Anomaly)
  Sender: FDA-Public Use
  Company Number: A0681219A

PATIENT
  Sex: Female
  Weight: 3.8 kg

DRUGS (1)
  1. PAXIL [Suspect]
     Indication: MIGRAINE
     Dosage: 20MG PER DAY
     Dates: start: 19951201, end: 19960101

REACTIONS (11)
  - COGNITIVE DISORDER [None]
  - CONGENITAL ANOMALY [None]
  - DEVELOPMENTAL DELAY [None]
  - DISTURBANCE IN ATTENTION [None]
  - DRUG EXPOSURE DURING PREGNANCY [None]
  - EXOMPHALOS [None]
  - FALL [None]
  - HERNIA [None]
  - MOUTH INJURY [None]
  - PATENT DUCTUS ARTERIOSUS [None]
  - URETERAL DISORDER [None]
